FAERS Safety Report 20473162 (Version 1)
Quarter: 2022Q1

REPORT INFORMATION
  Report Type: Spontaneous
  Country: UZ (occurrence: UZ)
  Receive Date: 20220215
  Receipt Date: 20220215
  Transmission Date: 20220423
  Serious: Yes (Hospitalization)
  Sender: FDA-Public Use
  Company Number: UZ-JNJFOC-20220214906

PATIENT
  Age: 39 Year
  Sex: Male
  Weight: 43 kg

DRUGS (4)
  1. SIRTURO [Suspect]
     Active Substance: BEDAQUILINE FUMARATE
     Indication: Tuberculosis
     Dosage: 400 UNITS NOT REPORTED
     Route: 048
     Dates: start: 20200921
  2. LINEZOLID [Suspect]
     Active Substance: LINEZOLID
     Indication: Tuberculosis
     Dosage: 300 UNITS NOT REPORTED
     Route: 048
     Dates: start: 20200921
  3. CLOFAZIMINE [Suspect]
     Active Substance: CLOFAZIMINE
     Indication: Tuberculosis
     Dosage: 100 UNITS NOT REPORTED
     Route: 048
     Dates: start: 20200921
  4. LEVOFLOXACIN [Suspect]
     Active Substance: LEVOFLOXACIN
     Indication: Tuberculosis
     Dosage: 750 UNITS NOT REPORTED
     Route: 048
     Dates: start: 20200921

REACTIONS (3)
  - Nausea [Recovering/Resolving]
  - Constipation [Recovering/Resolving]
  - Vomiting [Recovering/Resolving]

NARRATIVE: CASE EVENT DATE: 20211213
